FAERS Safety Report 24523769 (Version 6)
Quarter: 2025Q1

REPORT INFORMATION
  Report Type: Spontaneous
  Country: US (occurrence: US)
  Receive Date: 20241018
  Receipt Date: 20250227
  Transmission Date: 20250409
  Serious: Yes (Hospitalization)
  Sender: PFIZER
  Company Number: US-PFIZER INC-202400277563

PATIENT
  Age: 74 Year
  Sex: Female
  Weight: 89.36 kg

DRUGS (7)
  1. IBRANCE [Suspect]
     Active Substance: PALBOCICLIB
     Indication: Breast cancer metastatic
     Dosage: 1 TABLET ONCE A DAY AT BREAKFAST BETWEEN 7AM AND 8AM
     Route: 048
     Dates: start: 20240916
  2. IBRANCE [Suspect]
     Active Substance: PALBOCICLIB
     Dosage: 1 TABLET ONCE A DAY AT BREAKFAST BETWEEN 7AM AND 8AM
     Route: 048
     Dates: start: 20241014
  3. IBRANCE [Suspect]
     Active Substance: PALBOCICLIB
     Dosage: ONCE A DAY FOR 21 DAYS AND 7 DAYS OFF
     Route: 048
  4. IBRANCE [Suspect]
     Active Substance: PALBOCICLIB
     Dates: end: 20241201
  5. ANASTROZOLE [Concomitant]
     Active Substance: ANASTROZOLE
     Indication: Aromatase inhibition therapy
     Dosage: 1 MG, DAILY (TAKES SAME TIME AS IBRANCE, AT BREAKFAST)
     Route: 048
     Dates: start: 20240827
  6. LEVOTHYROXINE [Concomitant]
     Active Substance: LEVOTHYROXINE
     Indication: Hypothyroidism
     Dosage: 5 UG, 1X/DAY
  7. EMGALITY [Concomitant]
     Active Substance: GALCANEZUMAB-GNLM
     Indication: Migraine

REACTIONS (27)
  - Back pain [Unknown]
  - Peripheral swelling [Recovered/Resolved]
  - Lip swelling [Recovered/Resolved]
  - Blood pressure increased [Recovered/Resolved]
  - Chills [Recovered/Resolved]
  - Hyperhidrosis [Recovered/Resolved]
  - Mean cell volume increased [Recovering/Resolving]
  - Mean cell haemoglobin concentration decreased [Recovering/Resolving]
  - Eosinophil count increased [Recovering/Resolving]
  - Glomerular filtration rate decreased [Unknown]
  - Fluid retention [Recovered/Resolved]
  - Lymphocyte count decreased [Recovered/Resolved]
  - Hypersensitivity [Recovered/Resolved]
  - Blood creatinine increased [Unknown]
  - Sinusitis [Not Recovered/Not Resolved]
  - White blood cell count decreased [Unknown]
  - Oral pain [Unknown]
  - Mouth ulceration [Unknown]
  - Swelling [Unknown]
  - Dysphagia [Unknown]
  - Oropharyngeal pain [Unknown]
  - Glossodynia [Unknown]
  - Pharyngeal swelling [Unknown]
  - Throat irritation [Unknown]
  - Stomatitis [Unknown]
  - Ear swelling [Unknown]
  - Hypoacusis [Recovered/Resolved]

NARRATIVE: CASE EVENT DATE: 20240101
